FAERS Safety Report 17978383 (Version 3)
Quarter: 2020Q4

REPORT INFORMATION
  Report Type: Spontaneous
  Country: US (occurrence: US)
  Receive Date: 20200703
  Receipt Date: 20201210
  Transmission Date: 20210113
  Serious: No
  Sender: FDA-Public Use
  Company Number: US-VERTEX PHARMACEUTICALS-2020-003990

PATIENT
  Age: 30 Year
  Sex: Female

DRUGS (41)
  1. TRIKAFTA [Suspect]
     Active Substance: ELEXACAFTOR\IVACAFTOR\TEZACAFTOR
     Indication: CYSTIC FIBROSIS
     Dosage: 2 TABS (100MG ELEXACAFTOR/50MG TEZACAFTOR/75MG IVACAFTOR) AM AND 1 TAB (150MG IVACAFTOR) PM
     Route: 048
     Dates: start: 20191212
  2. ZITHROMAX [Concomitant]
     Active Substance: AZITHROMYCIN DIHYDRATE
     Dosage: UNK
  3. MAGNESIUM [Concomitant]
     Active Substance: MAGNESIUM
     Dosage: UNK
  4. VITAMIN D3 [Concomitant]
     Active Substance: CHOLECALCIFEROL
  5. GLUCAGEN [GLUCAGON] [Concomitant]
  6. RELIZORB [Concomitant]
  7. URSODIOL. [Concomitant]
     Active Substance: URSODIOL
     Dosage: UNK
  8. MELATONIN [Concomitant]
     Active Substance: MELATONIN
     Dosage: UNK
  9. FIORICET [Concomitant]
     Active Substance: ACETAMINOPHEN\BUTALBITAL\CAFFEINE
  10. LYSTEDA [Concomitant]
     Active Substance: TRANEXAMIC ACID
  11. ACTIGALL [Concomitant]
     Active Substance: URSODIOL
  12. ZENPEP [Concomitant]
     Active Substance: PANCRELIPASE AMYLASE\PANCRELIPASE LIPASE\PANCRELIPASE PROTEASE
     Dosage: 20,000-63000-84000
  13. ZOFRAN [Concomitant]
     Active Substance: ONDANSETRON HYDROCHLORIDE
     Dosage: UNK
  14. CUVITRU [Concomitant]
     Active Substance: HUMAN IMMUNOGLOBULIN G
     Dosage: UNK
  15. ELAVIL [AMITRIPTYLINE PAMOATE] [Concomitant]
     Active Substance: AMITRIPTYLINE PAMOATE
  16. PEPCID [Concomitant]
     Active Substance: FAMOTIDINE
  17. FERROUS SULFATE. [Concomitant]
     Active Substance: FERROUS SULFATE
  18. ENULOSE [Concomitant]
     Active Substance: LACTULOSE
  19. HYPERSAL [Concomitant]
     Active Substance: SODIUM CHLORIDE
  20. PRILOSEC [Concomitant]
     Active Substance: OMEPRAZOLE MAGNESIUM
     Dosage: UNK
  21. GAMMAGARD [Concomitant]
     Active Substance: HUMAN IMMUNOGLOBULIN G
     Dosage: 10 GRAM INJECTION
  22. ATROVENT HFA [Concomitant]
     Active Substance: IPRATROPIUM BROMIDE
  23. MEPHYTON [Concomitant]
     Active Substance: PHYTONADIONE
  24. PREVIDENT [Concomitant]
     Active Substance: SODIUM FLUORIDE
  25. HUMALOG JUNIOR KWIKPEN [Concomitant]
     Active Substance: INSULIN LISPRO
  26. EMLA [Concomitant]
     Active Substance: LIDOCAINE\PRILOCAINE
  27. ATROVENT [Concomitant]
     Active Substance: IPRATROPIUM BROMIDE
     Dosage: UNK
  28. EPIPEN [Concomitant]
     Active Substance: EPINEPHRINE
  29. NEUPOGEN [Concomitant]
     Active Substance: FILGRASTIM
  30. GVOKE HYPOPEN [Concomitant]
  31. DILAUDID [Concomitant]
     Active Substance: HYDROMORPHONE HYDROCHLORIDE
  32. PRILOSEC [Concomitant]
     Active Substance: OMEPRAZOLE MAGNESIUM
  33. FAMOTIDINE. [Concomitant]
     Active Substance: FAMOTIDINE
     Dosage: UNK
  34. BENADRYL [Concomitant]
     Active Substance: DIPHENHYDRAMINE HYDROCHLORIDE
     Dosage: UNK
  35. PULMOZYME [Concomitant]
     Active Substance: DORNASE ALFA
     Dosage: UNK
  36. TYLENOL [Concomitant]
     Active Substance: ACETAMINOPHEN
  37. CITRACAL + D [CALCIUM CITRATE;COLECALCIFEROL] [Concomitant]
     Active Substance: CALCIUM CITRATE\CHOLECALCIFEROL
  38. ZOFRAN [Concomitant]
     Active Substance: ONDANSETRON HYDROCHLORIDE
  39. SYMBICORT [Concomitant]
     Active Substance: BUDESONIDE\FORMOTEROL FUMARATE DIHYDRATE
     Dosage: 160-4.5 MCG/ACTUATION INHALER
  40. IRON [Concomitant]
     Active Substance: IRON
     Dosage: UNK
  41. ULTRAM [Concomitant]
     Active Substance: TRAMADOL HYDROCHLORIDE

REACTIONS (21)
  - Musculoskeletal stiffness [Unknown]
  - Headache [Not Recovered/Not Resolved]
  - Mood swings [Unknown]
  - Irritability [Unknown]
  - Dyspareunia [Recovered/Resolved]
  - Arthralgia [Unknown]
  - Swelling [Unknown]
  - Nervous system disorder [Recovered/Resolved]
  - Constipation [Unknown]
  - Abdominal pain upper [Unknown]
  - Blood creatinine increased [Recovered/Resolved]
  - Clumsiness [Recovered/Resolved]
  - Blood glucose decreased [Unknown]
  - Blood urea increased [Not Recovered/Not Resolved]
  - Joint stiffness [Unknown]
  - Aphasia [Recovered/Resolved]
  - Wheezing [Recovering/Resolving]
  - Fluid retention [Unknown]
  - Nocturia [Unknown]
  - Chest discomfort [Recovering/Resolving]
  - Renal colic [Unknown]

NARRATIVE: CASE EVENT DATE: 201912
